FAERS Safety Report 11639168 (Version 4)
Quarter: 2016Q2

REPORT INFORMATION
  Report Type: Spontaneous
  Country: US (occurrence: US)
  Receive Date: 20151019
  Receipt Date: 20160412
  Transmission Date: 20160815
  Serious: Yes (Life-Threatening, Hospitalization)
  Sender: FDA-Public Use
  Company Number: US-AUROBINDO-AUR-APL-2015-09334

PATIENT
  Age: 17 Month
  Sex: Female

DRUGS (2)
  1. FLECAINIDE 100 MG [Suspect]
     Active Substance: FLECAINIDE
     Indication: PRODUCT USED FOR UNKNOWN INDICATION
     Dosage: 17 MG, UNK
     Route: 065
  2. FLECAINIDE 100 MG [Suspect]
     Active Substance: FLECAINIDE
     Dosage: 100 MG, UNK
     Route: 065

REACTIONS (6)
  - Hypotension [Recovering/Resolving]
  - Drug prescribing error [Recovering/Resolving]
  - Accidental overdose [Recovering/Resolving]
  - Tachycardia [Recovering/Resolving]
  - Toxicity to various agents [Recovering/Resolving]
  - Lethargy [Recovering/Resolving]
